FAERS Safety Report 6894987-5 (Version None)
Quarter: 2010Q3

REPORT INFORMATION
  Report Type: 
  Country: None (occurrence: None)
  Receive Date: 20100802
  Receipt Date: 20100727
  Transmission Date: 20110219
  Serious: Yes (Hospitalization)
  Sender: FDA-Public Use
  Company Number: FR-ROCHE-717686

PATIENT
  Sex: Female

DRUGS (21)
  1. CLONAZEPAM [Suspect]
     Indication: STATUS EPILEPTICUS
     Route: 042
     Dates: start: 20100702
  2. CLONAZEPAM [Suspect]
     Route: 042
     Dates: start: 20100703
  3. CLONAZEPAM [Suspect]
     Route: 042
     Dates: start: 20100710, end: 20100716
  4. KEPPRA [Suspect]
     Indication: STATUS EPILEPTICUS
     Route: 042
     Dates: start: 20100703, end: 20100707
  5. KEPPRA [Suspect]
     Route: 042
     Dates: start: 20100710
  6. KEPPRA [Suspect]
     Route: 042
     Dates: start: 20100715, end: 20100716
  7. GARDENAL [Suspect]
     Indication: STATUS EPILEPTICUS
     Route: 042
     Dates: start: 20100703, end: 20100707
  8. GARDENAL [Suspect]
     Route: 042
     Dates: start: 20100710
  9. GARDENAL [Suspect]
     Dosage: DOSE: 1 GRAM/20 MINUTES
     Route: 042
     Dates: start: 20100715, end: 20100716
  10. DEPAKENE [Concomitant]
     Route: 042
     Dates: start: 20100602, end: 20100704
  11. DEPAKENE [Concomitant]
     Dosage: ROUTE: INTRAVENOUS
     Route: 042
     Dates: start: 20100716, end: 20100717
  12. PENTHOTAL [Concomitant]
     Dosage: ORO-THRACHEAL INTUBATION
  13. AUGMENTIN '125' [Concomitant]
  14. PRODILANTIN [Concomitant]
  15. MIDAZOLAM HCL [Concomitant]
     Indication: SEDATION
  16. SUFENTANIL [Concomitant]
     Indication: SEDATION
  17. SUFENTANIL [Concomitant]
  18. PROPOFOL [Concomitant]
  19. LAMICTAL [Concomitant]
     Dates: start: 20100709
  20. TOPIRAMATE [Concomitant]
     Dates: end: 20100101
  21. DILANTIN [Concomitant]

REACTIONS (2)
  - CYTOLYTIC HEPATITIS [None]
  - HYPERLIPASAEMIA [None]
